FAERS Safety Report 12299376 (Version 1)
Quarter: 2016Q2

REPORT INFORMATION
  Report Type: Spontaneous
  Country: NL (occurrence: NL)
  Receive Date: 20160425
  Receipt Date: 20160425
  Transmission Date: 20160815
  Serious: Yes (Other)
  Sender: FDA-Public Use
  Company Number: NL-AMGEN-NLDSP2016049996

PATIENT
  Age: 75 Year
  Sex: Female
  Weight: 60 kg

DRUGS (7)
  1. PROLIA [Suspect]
     Active Substance: DENOSUMAB
     Indication: OSTEOPOROSIS
     Dosage: 60 MG/ML, Q6MO
     Route: 058
     Dates: start: 2013
  2. VALSARTAN AND HYDROCHLOROTHIAZIDE [Concomitant]
     Active Substance: HYDROCHLOROTHIAZIDE\VALSARTAN
     Dosage: 160/12.5 MG, QD
     Route: 048
     Dates: start: 20110207
  3. FOLIUMZUUR [Concomitant]
     Active Substance: FOLIC ACID
     Dosage: 0.5 MG, QD
     Route: 048
     Dates: start: 20130624
  4. ENTOCORT [Suspect]
     Active Substance: BUDESONIDE
     Indication: OSTEOPOROSIS
     Dosage: 3 MG, QD
     Route: 058
     Dates: start: 20100624
  5. HYDROXOCOBALAMINE [Concomitant]
     Dosage: 500 MUG/ML, Q2MO
     Dates: start: 20120115
  6. CALCI CHEW D3 [Concomitant]
     Active Substance: CALCIUM CARBONATE\CHOLECALCIFEROL
     Dosage: 500MG/4001E, QD
     Dates: start: 20100707
  7. RABEPRAZOL [Concomitant]
     Dosage: 20 MG, QD
     Dates: start: 20100624

REACTIONS (1)
  - Haemorrhage [Not Recovered/Not Resolved]
